FAERS Safety Report 14362566 (Version 3)
Quarter: 2018Q1

REPORT INFORMATION
  Report Type: Spontaneous
  Country: FR (occurrence: SE)
  Receive Date: 20180108
  Receipt Date: 20180315
  Transmission Date: 20180509
  Serious: Yes (Hospitalization)
  Sender: FDA-Public Use
  Company Number: FR-AUROBINDO-AUR-APL-2018-001026

PATIENT
  Age: 6 Year
  Sex: Male
  Weight: 33.2 kg

DRUGS (12)
  1. METHYLPREDNISOLONE. [Concomitant]
     Active Substance: METHYLPREDNISOLONE
     Indication: HEADACHE
     Dosage: 4 MG, QD
     Route: 048
     Dates: start: 20180115
  2. MOVICOL JUNIOR NEUTRAL [Concomitant]
     Indication: CONSTIPATION
     Dosage: UNK ()
     Route: 048
     Dates: start: 20171004
  3. OMESTAD [Concomitant]
     Indication: PROPHYLAXIS
     Dosage: 20 MG, UNK
     Route: 065
     Dates: start: 20171008
  4. METOPROLOL. [Suspect]
     Active Substance: METOPROLOL
     Indication: PRODUCT USED FOR UNKNOWN INDICATION
     Dosage: 25 MG, UNK
     Route: 048
     Dates: start: 20171101
  5. BACTRIM [Concomitant]
     Active Substance: SULFAMETHOXAZOLE\TRIMETHOPRIM
     Indication: INFECTION PROPHYLAXIS
     Dosage: 2 DF, UNK (2 TABLETS ON SATURDAY AND SUNDAY)
     Route: 065
  6. METHYLPREDNISOLONE. [Concomitant]
     Active Substance: METHYLPREDNISOLONE
     Indication: PRODUCT USED FOR UNKNOWN INDICATION
     Dosage: 3 MG, UNK
     Route: 048
     Dates: start: 20170821
  7. ACTILYSE [Concomitant]
     Active Substance: ALTEPLASE
     Indication: THROMBOSIS IN DEVICE
     Dosage: 1.5 MG, PRN
     Route: 065
     Dates: start: 20170918
  8. VOTUBIA [Suspect]
     Active Substance: EVEROLIMUS
     Indication: GLIOMA
     Dosage: 5 MG, QD
     Route: 048
     Dates: start: 20170918, end: 20171006
  9. ZOFRAN [Suspect]
     Active Substance: ONDANSETRON HYDROCHLORIDE
     Indication: NAUSEA
     Dosage: 4 MG, UNK
     Route: 048
     Dates: start: 20170928
  10. ISONIAZID. [Concomitant]
     Active Substance: ISONIAZID
     Indication: PRODUCT USED FOR UNKNOWN INDICATION
  11. OMEPRAZOLE. [Concomitant]
     Active Substance: OMEPRAZOLE
     Indication: PRODUCT USED FOR UNKNOWN INDICATION
  12. METOPROLOL. [Suspect]
     Active Substance: METOPROLOL
     Indication: HYPERTENSION

REACTIONS (7)
  - Erythema [Unknown]
  - Device related infection [Recovered/Resolved]
  - Catheter site infection [Recovered/Resolved]
  - Headache [Recovered/Resolved]
  - Device related infection [Recovered/Resolved]
  - Hemiparesis [Recovered/Resolved]
  - Product use in unapproved indication [Unknown]

NARRATIVE: CASE EVENT DATE: 20171007
